FAERS Safety Report 4318291-4 (Version None)
Quarter: 2004Q1

REPORT INFORMATION
  Report Type: 
  Country: None (occurrence: None)
  Receive Date: 20040315
  Receipt Date: 20031120
  Transmission Date: 20041129
  Serious: No
  Sender: FDA-Public Use
  Company Number: 2003187664US

PATIENT
  Age: 66 Year
  Sex: Male

DRUGS (1)
  1. BEXTRA [Suspect]
     Indication: NERVE INJURY
     Dosage: 10 MG, QD
     Dates: start: 20031117

REACTIONS (1)
  - MUSCLE CONTRACTIONS INVOLUNTARY [None]
